FAERS Safety Report 21534705 (Version 1)
Quarter: 2022Q4

REPORT INFORMATION
  Report Type: Spontaneous
  Country: US (occurrence: US)
  Receive Date: 20221101
  Receipt Date: 20221101
  Transmission Date: 20230113
  Serious: No
  Sender: FDA-Public Use
  Company Number: US-MIGRATION_PFIZER-2022BHV001740

PATIENT
  Age: 25 Year
  Sex: Female
  Weight: 65.830 kg

DRUGS (1)
  1. NURTEC ODT [Suspect]
     Active Substance: RIMEGEPANT SULFATE
     Indication: Hemiplegic migraine
     Dosage: 1 TABLET / APPROVED FOR EVERY OTHER DAY BUT I JUST TAKE IT (NURTEC) AS NEEDED
     Route: 065

REACTIONS (1)
  - Therapeutic product effect decreased [Not Recovered/Not Resolved]

NARRATIVE: CASE EVENT DATE: 20220627
